FAERS Safety Report 9682955 (Version 1)
Quarter: 2013Q4

REPORT INFORMATION
  Report Type: Spontaneous
  Country: ES (occurrence: ES)
  Receive Date: 20131112
  Receipt Date: 20131112
  Transmission Date: 20140711
  Serious: Yes (Life-Threatening)
  Sender: FDA-Public Use
  Company Number: ES-BAYER-2013-134622

PATIENT
  Age: 37 Year
  Sex: Female

DRUGS (1)
  1. BETAFERON [Suspect]
     Route: 065
     Dates: start: 20131017

REACTIONS (3)
  - Pyomyositis [Recovering/Resolving]
  - Bacterial sepsis [Recovering/Resolving]
  - Injection site abscess [Recovering/Resolving]
